FAERS Safety Report 4448449-5 (Version None)
Quarter: 2004Q3

REPORT INFORMATION
  Report Type: 
  Country: None (occurrence: None)
  Receive Date: 20040909
  Receipt Date: 20040825
  Transmission Date: 20050211
  Serious: Yes (Life-Threatening, Hospitalization)
  Sender: FDA-Public Use
  Company Number: 04P-167-0271493-00

PATIENT
  Age: 28 Year
  Sex: Male

DRUGS (1)
  1. VALPROATE SODIUM [Suspect]
     Indication: EPILEPSY
     Dosage: 500 MG, 1 IN 1 D
     Dates: start: 20020101

REACTIONS (2)
  - GASTROENTERITIS [None]
  - HYPOCALCAEMIA [None]
